FAERS Safety Report 7352436-7 (Version None)
Quarter: 2011Q1

REPORT INFORMATION
  Report Type: 
  Country: None (occurrence: None)
  Receive Date: 20110304
  Receipt Date: 20110228
  Transmission Date: 20110831
  Serious: Yes (Hospitalization)
  Sender: FDA-Public Use
  Company Number: CIP11000289

PATIENT
  Age: 82 Year
  Sex: Male

DRUGS (3)
  1. ERGOCALCIFEROL [Concomitant]
  2. ACTONEL [Suspect]
     Dosage: 150 MG ONCE DOSE ONLY, ORAL
     Route: 048
     Dates: start: 20110208, end: 20110208
  3. CALCIUM (CALCIUM) [Concomitant]

REACTIONS (6)
  - TREMOR [None]
  - DIZZINESS [None]
  - PYREXIA [None]
  - FALL [None]
  - HYPOAESTHESIA [None]
  - PARAESTHESIA [None]
